FAERS Safety Report 17566177 (Version 1)
Quarter: 2020Q1

REPORT INFORMATION
  Report Type: Spontaneous
  Country: ES (occurrence: ES)
  Receive Date: 20200320
  Receipt Date: 20200320
  Transmission Date: 20200409
  Serious: Yes (Life-Threatening)
  Sender: FDA-Public Use
  Company Number: NVSC2020ES077374

PATIENT
  Age: 74 Year
  Sex: Male

DRUGS (1)
  1. IMATINIB. [Suspect]
     Active Substance: IMATINIB MESYLATE
     Indication: GASTRIC CANCER
     Dosage: UNK
     Route: 065
     Dates: start: 20130101

REACTIONS (2)
  - Acute aortic syndrome [Recovered/Resolved]
  - Arterial intramural haematoma [Recovered/Resolved]

NARRATIVE: CASE EVENT DATE: 20151015
